FAERS Safety Report 9647379 (Version 1)
Quarter: 2013Q4

REPORT INFORMATION
  Report Type: Spontaneous
  Country: TR (occurrence: TR)
  Receive Date: 20131028
  Receipt Date: 20131028
  Transmission Date: 20140711
  Serious: Yes (Other)
  Sender: FDA-Public Use
  Company Number: PHHY2013TR118790

PATIENT
  Age: 78 Year
  Sex: Female

DRUGS (3)
  1. OLANZAPINE [Suspect]
  2. SERTRALINE [Suspect]
  3. LITHIUM [Suspect]
     Indication: BIPOLAR DISORDER

REACTIONS (10)
  - Disorientation [Recovered/Resolved]
  - Hyporeflexia [Unknown]
  - Ataxia [Recovering/Resolving]
  - Balance disorder [Recovering/Resolving]
  - Partial seizures [Recovering/Resolving]
  - Confusional state [Recovering/Resolving]
  - Tremor [Unknown]
  - Gait disturbance [Recovering/Resolving]
  - Somnolence [Unknown]
  - Toxicity to various agents [Unknown]
